FAERS Safety Report 6162667-X (Version None)
Quarter: 2009Q2

REPORT INFORMATION
  Report Type: 
  Country: None (occurrence: None)
  Receive Date: 20090421
  Receipt Date: 20081210
  Transmission Date: 20091009
  Serious: No
  Sender: FDA-Public Use
  Company Number: US-ASTRAZENECA-2008UW27660

PATIENT
  Age: 81 Year
  Sex: Male

DRUGS (2)
  1. CASODEX [Suspect]
     Indication: PROSTATE CANCER
     Route: 048
     Dates: start: 20070601, end: 20080101
  2. ZOLADEX [Concomitant]
     Route: 058
     Dates: start: 20060301

REACTIONS (1)
  - PROSTATIC SPECIFIC ANTIGEN INCREASED [None]
